FAERS Safety Report 5407085-4 (Version None)
Quarter: 2007Q3

REPORT INFORMATION
  Report Type: 
  Country: None (occurrence: None)
  Receive Date: 20070802
  Receipt Date: 20070720
  Transmission Date: 20080115
  Serious: Yes (Other)
  Sender: FDA-Public Use
  Company Number: GXKR2007DE06287

PATIENT
  Age: 60 Year
  Sex: Female

DRUGS (4)
  1. CYCLOSPORINE [Suspect]
     Indication: PYODERMA GANGRENOSUM
     Dosage: 300 MG
     Dates: start: 20030101, end: 20050101
  2. METHYLPREDNISOLONE [Suspect]
     Indication: PYODERMA GANGRENOSUM
     Dosage: 16 MG
     Dates: start: 20030101, end: 20050101
  3. MYCOPHENOLATE MOFETIL [Concomitant]
     Indication: PYODERMA GANGRENOSUM
     Dosage: 2 G
     Dates: start: 20030101, end: 20050101
  4. CORTICOSTEROID (NO INGREDIENTS/SUBSTANCES) [Concomitant]

REACTIONS (12)
  - ABSCESS LIMB [None]
  - ANAEMIA [None]
  - BACTERIAL INFECTION [None]
  - CONDITION AGGRAVATED [None]
  - GRANULOMA SKIN [None]
  - MYCOBACTERIAL INFECTION [None]
  - NECROSIS [None]
  - PYODERMA GANGRENOSUM [None]
  - SCAR [None]
  - SKIN ULCER [None]
  - SOFT TISSUE INFLAMMATION [None]
  - THROMBOCYTOPENIA [None]
